FAERS Safety Report 23899547 (Version 1)
Quarter: 2024Q2

REPORT INFORMATION
  Report Type: Spontaneous
  Country: US (occurrence: None)
  Receive Date: 20240526
  Receipt Date: 20240526
  Transmission Date: 20240716
  Serious: No
  Sender: FDA-Public Use
  Company Number: US-ROCHE-3541463

PATIENT
  Sex: Female

DRUGS (15)
  1. ACTEMRA [Suspect]
     Active Substance: TOCILIZUMAB
     Indication: Giant cell arteritis
     Route: 058
  2. ACTEMRA [Suspect]
     Active Substance: TOCILIZUMAB
  3. ACTEMRA [Suspect]
     Active Substance: TOCILIZUMAB
  4. ASPIRIN [Concomitant]
     Active Substance: ASPIRIN
  5. ATENOLOL [Concomitant]
     Active Substance: ATENOLOL
  6. CALCIUM [Concomitant]
     Active Substance: CALCIUM
  7. DICLOFENAC [Concomitant]
     Active Substance: DICLOFENAC
  8. GLIPIZIDE [Concomitant]
     Active Substance: GLIPIZIDE
  9. LEVOTHYROXINE [Concomitant]
     Active Substance: LEVOTHYROXINE\LEVOTHYROXINE SODIUM
  10. METFORMIN [Concomitant]
     Active Substance: METFORMIN HYDROCHLORIDE
  11. OMEPRAZOLE [Concomitant]
     Active Substance: DONEPEZIL HYDROCHLORIDE\OMEPRAZOLE\OMEPRAZOLE MAGNESIUM
  12. POTASSIUM [Concomitant]
     Active Substance: POTASSIUM
  13. PRAVASTATIN [Concomitant]
     Active Substance: PRAVASTATIN
  14. PREDNISONE [Concomitant]
     Active Substance: PREDNISONE
  15. SPIRONOLACTONE [Concomitant]
     Active Substance: SPIRONOLACTONE

REACTIONS (1)
  - Genital rash [Unknown]
